FAERS Safety Report 18461805 (Version 1)
Quarter: 2020Q4

REPORT INFORMATION
  Report Type: Spontaneous
  Country: US (occurrence: US)
  Receive Date: 20201104
  Receipt Date: 20201104
  Transmission Date: 20210114
  Serious: No
  Sender: FDA-Public Use
  Company Number: US-GLAXOSMITHKLINE-US2020215319

PATIENT
  Age: 60 Year
  Sex: Female

DRUGS (1)
  1. ALLI [Suspect]
     Active Substance: ORLISTAT
     Indication: WEIGHT LOSS DIET
     Dosage: 1 DF, QD
     Dates: start: 20201024, end: 20201027

REACTIONS (2)
  - Rectal discharge [Recovered/Resolved]
  - Steatorrhoea [Recovered/Resolved]

NARRATIVE: CASE EVENT DATE: 20201027
